FAERS Safety Report 5836933-9 (Version None)
Quarter: 2008Q3

REPORT INFORMATION
  Report Type: 
  Country: None (occurrence: None)
  Receive Date: 20080807
  Receipt Date: 20080728
  Transmission Date: 20090109
  Serious: Yes (Other)
  Sender: FDA-Public Use
  Company Number: BE-ABBOTT-08P-013-0461920-00

PATIENT
  Age: 49 Year
  Weight: 108 kg

DRUGS (9)
  1. HUMIRA [Suspect]
     Indication: PSORIASIS
     Dates: start: 20080515
  2. METHOTREXATE [Concomitant]
     Indication: PSORIASIS
  3. CYCLOSPORINE [Concomitant]
     Indication: PSORIASIS
  4. PUVA [Concomitant]
     Indication: PSORIASIS
  5. BROTIZOLAM [Concomitant]
     Indication: DRUG USE FOR UNKNOWN INDICATION
  6. BARNIDIPINE HYDROCHLORIDE [Concomitant]
     Indication: HYPERTENSION
  7. OMEPRAZOLE MAGNESIUM [Concomitant]
     Indication: ABDOMINAL PAIN UPPER
  8. ALLOPURINOL [Concomitant]
     Indication: HYPERURICAEMIA
  9. HEPAGRISEVIT FORTE-N [Concomitant]
     Indication: LEUKOPENIA

REACTIONS (3)
  - DIPLOPIA [None]
  - EYE DISORDER [None]
  - VISUAL ACUITY REDUCED [None]
